FAERS Safety Report 22164522 (Version 2)
Quarter: 2023Q2

REPORT INFORMATION
  Report Type: Spontaneous
  Country: US (occurrence: US)
  Receive Date: 20230403
  Receipt Date: 20230503
  Transmission Date: 20230721
  Serious: No
  Sender: FDA-Public Use
  Company Number: US-BRISTOL-MYERS SQUIBB COMPANY-2023-046718

PATIENT
  Age: 39 Year
  Sex: Female

DRUGS (2)
  1. SPRYCEL [Suspect]
     Active Substance: DASATINIB
     Indication: Chronic myeloid leukaemia
     Route: 048
     Dates: start: 202108
  2. SPRYCEL [Suspect]
     Active Substance: DASATINIB
     Route: 048
     Dates: start: 202304

REACTIONS (8)
  - Memory impairment [Unknown]
  - Confusional state [Unknown]
  - Fatigue [Unknown]
  - Pain [Unknown]
  - Depression [Unknown]
  - Headache [Unknown]
  - Asthenia [Unknown]
  - Brain fog [Unknown]
